FAERS Safety Report 5670521-2 (Version None)
Quarter: 2008Q1

REPORT INFORMATION
  Report Type: 
  Country: None (occurrence: None)
  Receive Date: 20080318
  Receipt Date: 20080313
  Transmission Date: 20080703
  Serious: Yes (Death, Hospitalization, Other)
  Sender: FDA-Public Use
  Company Number: PHHO2007JP04019

PATIENT
  Age: 74 Year
  Sex: Male
  Weight: 46 kg

DRUGS (28)
  1. ENTACAPONE [Suspect]
     Indication: PARKINSON'S DISEASE
     Dosage: 200MG QID (800MG/DAY)
     Route: 048
     Dates: start: 20031025, end: 20050311
  2. ENTACAPONE [Suspect]
     Dosage: 100MG QID (400MG/DAY)
     Route: 048
     Dates: start: 20050312, end: 20070511
  3. ENTACAPONE [Suspect]
     Dosage: 400MG
     Route: 048
     Dates: start: 20070512, end: 20070725
  4. FAMOTIDINE [Suspect]
     Indication: GASTRIC ULCER
  5. SEVEN EP [Suspect]
     Indication: DYSPEPSIA
  6. MUCOSTA [Suspect]
     Indication: GASTRIC ULCER
  7. EC DOPARL [Suspect]
     Indication: PARKINSON'S DISEASE
  8. MAGNESIUM OXIDE [Suspect]
     Indication: CONSTIPATION
  9. LECICARBON [Suspect]
     Indication: CONSTIPATION
  10. POSTERISAN [Suspect]
     Indication: HAEMORRHOIDS
  11. TAKEPRON [Suspect]
     Indication: REFLUX OESOPHAGITIS
  12. ALLOID [Suspect]
     Indication: PROPHYLAXIS
  13. AMOBAN [Suspect]
     Indication: CONSTIPATION
  14. ISOTONIC SOLUTIONS [Suspect]
  15. OMNIPAQUE 300 [Suspect]
  16. GLYSENNID [Suspect]
  17. GASTROGRAFIN [Suspect]
  18. TETRAMIDE [Concomitant]
  19. OMEPROL [Concomitant]
  20. DOPASTON [Concomitant]
  21. PRIMPERAN INJ [Concomitant]
  22. LAXOBERON [Concomitant]
  23. ROHYPNOL [Concomitant]
  24. MORPHINE HCL ELIXIR [Concomitant]
  25. ANAFRANIL [Concomitant]
  26. ROPION [Concomitant]
  27. LENDORMIN [Concomitant]
  28. ANHIBA [Concomitant]

REACTIONS (14)
  - CARDIAC ARREST [None]
  - CONCOMITANT DISEASE PROGRESSION [None]
  - DYSPHAGIA [None]
  - INSOMNIA [None]
  - METASTASES TO LYMPH NODES [None]
  - OESOPHAGEAL CARCINOMA [None]
  - OESOPHAGEAL STENOSIS [None]
  - ORAL INTAKE REDUCED [None]
  - RESPIRATORY ARREST [None]
  - SPUTUM RETENTION [None]
  - STENT OCCLUSION [None]
  - STENT PLACEMENT [None]
  - VOMITING [None]
  - WEIGHT DECREASED [None]
